FAERS Safety Report 14005761 (Version 1)
Quarter: 2017Q3

REPORT INFORMATION
  Report Type: Other
  Country: US (occurrence: US)
  Receive Date: 20170923
  Receipt Date: 20170923
  Transmission Date: 20171128
  Serious: No
  Sender: FDA-Public Use
  Company Number: US-APOTEX-2017AP015921

PATIENT
  Age: 45 Year
  Sex: Female

DRUGS (1)
  1. CLARISPRAY NASAL ALLERGY [Suspect]
     Active Substance: FLUTICASONE PROPIONATE
     Indication: SEASONAL ALLERGY
     Route: 045

REACTIONS (6)
  - Therapeutic response delayed [Unknown]
  - Hypersensitivity [Unknown]
  - Lacrimation increased [Unknown]
  - Tinnitus [Not Recovered/Not Resolved]
  - Product taste abnormal [Unknown]
  - Eye pruritus [Recovering/Resolving]
